FAERS Safety Report 21422308 (Version 1)
Quarter: 2022Q4

REPORT INFORMATION
  Report Type: Spontaneous
  Country: US (occurrence: None)
  Receive Date: 20221006
  Receipt Date: 20221006
  Transmission Date: 20230113
  Serious: Yes (unspecified)
  Sender: FDA-Public Use
  Company Number: None

PATIENT
  Age: 8 Year
  Weight: 27.1 kg

DRUGS (8)
  1. DUPIXENT [Suspect]
     Active Substance: DUPILUMAB
     Indication: Dermatitis atopic
     Dosage: OTHER FREQUENCY : Q28D;?
     Route: 058
     Dates: start: 20220526, end: 20220728
  2. ALBUTEROL [Concomitant]
     Active Substance: ALBUTEROL
  3. CETIRIZINE [Concomitant]
     Active Substance: CETIRIZINE HYDROCHLORIDE
  4. hydrocortisone valerate 0.2% ointment [Concomitant]
  5. VITAMINS [Concomitant]
     Active Substance: VITAMINS
  6. pimecrolimus 1% cream [Concomitant]
  7. sodium fluoride toothpaste [Concomitant]
  8. TRIAMCINOLONE ACETONIDE [Concomitant]
     Active Substance: TRIAMCINOLONE ACETONIDE

REACTIONS (2)
  - Diarrhoea haemorrhagic [None]
  - Irritable bowel syndrome [None]

NARRATIVE: CASE EVENT DATE: 20220802
